FAERS Safety Report 19085588 (Version 3)
Quarter: 2021Q3

REPORT INFORMATION
  Report Type: Report from Study
  Country: US (occurrence: US)
  Receive Date: 20210402
  Receipt Date: 20210813
  Transmission Date: 20211014
  Serious: Yes (Hospitalization, Other)
  Sender: FDA-Public Use
  Company Number: US-ACADIA PHARMACEUTICALS INC.-ACA-2021-PIM-000965

PATIENT
  Age: 77 Year
  Sex: Female

DRUGS (1)
  1. NUPLAZID [Suspect]
     Active Substance: PIMAVANSERIN TARTRATE
     Indication: PARKINSON^S DISEASE
     Dosage: 34 MILLIGRAM, QD
     Route: 048
     Dates: start: 20200519, end: 20210726

REACTIONS (33)
  - Chest discomfort [Unknown]
  - Hallucination [Unknown]
  - Illness [Unknown]
  - Erythema [Unknown]
  - Dysphonia [Unknown]
  - Drug ineffective [Unknown]
  - Hypertension [Unknown]
  - Hallucination [Not Recovered/Not Resolved]
  - Choking [Unknown]
  - Dyspepsia [Unknown]
  - Amnesia [Unknown]
  - Nausea [Unknown]
  - Abdominal discomfort [Unknown]
  - Blood pressure fluctuation [Unknown]
  - Perforation [Unknown]
  - Oesophageal disorder [Unknown]
  - Pruritus [Unknown]
  - Urticaria [Unknown]
  - Abdominal pain [Unknown]
  - Cognitive disorder [Unknown]
  - Cardiac disorder [Unknown]
  - Palpitations [Unknown]
  - Hypersensitivity [Unknown]
  - Dysphagia [Unknown]
  - Loss of consciousness [Unknown]
  - Product dose omission issue [Unknown]
  - Dizziness [Unknown]
  - Peripheral swelling [Unknown]
  - Feeding disorder [Unknown]
  - Hallucination [None]
  - Weight decreased [Unknown]
  - Disease progression [Unknown]
  - Bowel movement irregularity [Unknown]

NARRATIVE: CASE EVENT DATE: 202106
